FAERS Safety Report 23632566 (Version 1)
Quarter: 2024Q1

REPORT INFORMATION
  Report Type: Spontaneous
  Country: CA (occurrence: CA)
  Receive Date: 20240314
  Receipt Date: 20240314
  Transmission Date: 20240409
  Serious: Yes (Hospitalization)
  Sender: FDA-Public Use
  Company Number: CA-AstraZeneca-2024A056453

PATIENT
  Sex: Female
  Weight: 76 kg

DRUGS (3)
  1. TRASTUZUMAB DERUXTECAN [Suspect]
     Active Substance: TRASTUZUMAB DERUXTECAN
     Indication: HER2 positive breast cancer
     Dosage: 419 MG, ONCE EVERY 2 WK
     Route: 042
  2. TRASTUZUMAB DERUXTECAN [Suspect]
     Active Substance: TRASTUZUMAB DERUXTECAN
     Dosage: 345 MG, ONCE EVERY 2 WK
     Route: 042
  3. TRASTUZUMAB DERUXTECAN [Suspect]
     Active Substance: TRASTUZUMAB DERUXTECAN
     Dosage: 3.2 MG, ONCE EVERY 2 WK
     Route: 042

REACTIONS (3)
  - Anaemia [Unknown]
  - Fatigue [Unknown]
  - Haemorrhage [Unknown]
